FAERS Safety Report 13727725 (Version 3)
Quarter: 2017Q3

REPORT INFORMATION
  Report Type: Spontaneous
  Country: US (occurrence: US)
  Receive Date: 20170707
  Receipt Date: 20170919
  Transmission Date: 20171127
  Serious: No
  Sender: FDA-Public Use
  Company Number: US-ROCHE-1956551

PATIENT
  Age: 62 Year
  Sex: Female
  Weight: 78.47 kg

DRUGS (14)
  1. EXEMESTANE. [Concomitant]
     Active Substance: EXEMESTANE
     Route: 065
     Dates: start: 20140326
  2. IBRANCE [Suspect]
     Active Substance: PALBOCICLIB
     Indication: BREAST CANCER METASTATIC
     Route: 048
     Dates: start: 20170308
  3. FERROUS SULFATE. [Concomitant]
     Active Substance: FERROUS SULFATE
     Route: 065
  4. ZOMETA [Concomitant]
     Active Substance: ZOLEDRONIC ACID
     Dosage: (4MG/5ML) 5 ML EVERY 3 MONTHS
     Route: 042
     Dates: start: 201411
  5. EVEROLIMUS [Concomitant]
     Active Substance: EVEROLIMUS
     Route: 065
     Dates: start: 20140326
  6. XELODA [Suspect]
     Active Substance: CAPECITABINE
     Indication: BREAST CANCER METASTATIC
     Dosage: 1 WEEK ON 1 WEEK OFF
     Route: 065
     Dates: start: 20150615
  7. ASCORBIC ACID. [Concomitant]
     Active Substance: ASCORBIC ACID
     Route: 048
  8. ONDASETRON [Concomitant]
     Active Substance: ONDANSETRON
     Dosage: TAKE 1 TAB PO EVERY 8 HOURS AS NEEDED
     Route: 048
  9. ANASTROZOLE. [Concomitant]
     Active Substance: ANASTROZOLE
     Route: 065
     Dates: start: 20121203
  10. LETROZOLE. [Concomitant]
     Active Substance: LETROZOLE
     Route: 048
  11. FLUOCINONIDE. [Concomitant]
     Active Substance: FLUOCINONIDE
     Route: 065
  12. IBRANCE [Suspect]
     Active Substance: PALBOCICLIB
     Dosage: 125MG DAILY X 21 DAYS
     Route: 048
     Dates: start: 201702
  13. BETAMETHASONE VALERATE. [Concomitant]
     Active Substance: BETAMETHASONE VALERATE
     Dosage: TWICE DAILS AS NEEDED
     Route: 065
  14. FASLODEX [Concomitant]
     Active Substance: FULVESTRANT
     Route: 065
     Dates: start: 20121203

REACTIONS (4)
  - Weight increased [Unknown]
  - Hunger [Unknown]
  - Alopecia [Unknown]
  - Leukopenia [Unknown]

NARRATIVE: CASE EVENT DATE: 201703
